FAERS Safety Report 25837189 (Version 1)
Quarter: 2025Q3

REPORT INFORMATION
  Report Type: Spontaneous
  Country: US (occurrence: US)
  Receive Date: 20250923
  Receipt Date: 20250923
  Transmission Date: 20251020
  Serious: No
  Sender: Haleon PLC
  Company Number: US-HALEON-2264155

PATIENT

DRUGS (1)
  1. GAS-X [Suspect]
     Active Substance: DIMETHICONE
     Indication: Abdominal distension

REACTIONS (1)
  - Muscle spasms [Unknown]
